FAERS Safety Report 9819784 (Version 3)
Quarter: 2014Q4

REPORT INFORMATION
  Report Type: Spontaneous
  Country: JP (occurrence: JP)
  Receive Date: 20140116
  Receipt Date: 20141127
  Transmission Date: 20150529
  Serious: Yes (Hospitalization, Other)
  Sender: FDA-Public Use
  Company Number: JP-ROCHE-1331745

PATIENT
  Age: 62 Year
  Sex: Female

DRUGS (9)
  1. HERCEPTIN [Suspect]
     Active Substance: TRASTUZUMAB
     Route: 041
     Dates: start: 20140925
  2. HERCEPTIN [Suspect]
     Active Substance: TRASTUZUMAB
     Route: 041
     Dates: end: 20131010
  3. XELODA [Suspect]
     Active Substance: CAPECITABINE
     Route: 048
     Dates: end: 2014
  4. XELODA [Suspect]
     Active Substance: CAPECITABINE
     Indication: BREAST CANCER RECURRENT
     Route: 048
     Dates: start: 2013, end: 20131010
  5. TAXOTERE [Suspect]
     Active Substance: DOCETAXEL
     Indication: BREAST CANCER RECURRENT
     Dosage: DOSAGE UNCERTAIN.
     Route: 041
     Dates: start: 2013, end: 2013
  6. XELODA [Suspect]
     Active Substance: CAPECITABINE
     Route: 048
     Dates: start: 20140925
  7. HERCEPTIN [Suspect]
     Active Substance: TRASTUZUMAB
     Route: 041
     Dates: end: 2014
  8. HERCEPTIN [Suspect]
     Active Substance: TRASTUZUMAB
     Indication: BREAST CANCER RECURRENT
     Route: 041
     Dates: start: 2013, end: 2013
  9. TAXOTERE [Suspect]
     Active Substance: DOCETAXEL
     Indication: BREAST CANCER RECURRENT
     Dosage: DOSAGE UNCERTAIN.
     Route: 041
     Dates: start: 2013, end: 2013

REACTIONS (4)
  - Palmar-plantar erythrodysaesthesia syndrome [Recovered/Resolved]
  - Spondylitis [Recovered/Resolved]
  - Hepatic function abnormal [Unknown]
  - Bone marrow failure [Recovered/Resolved]

NARRATIVE: CASE EVENT DATE: 20131010
